FAERS Safety Report 9469562 (Version 2)
Quarter: 2013Q3

REPORT INFORMATION
  Report Type: Spontaneous
  Country: US (occurrence: US)
  Receive Date: 20130822
  Receipt Date: 20130822
  Transmission Date: 20140515
  Serious: Yes (Hospitalization)
  Sender: FDA-Public Use
  Company Number: US-BIOGENIDEC-2013BI067984

PATIENT
  Age: 50 Year
  Sex: Female

DRUGS (6)
  1. TECFIDERA [Suspect]
     Indication: MULTIPLE SCLEROSIS
     Route: 048
     Dates: start: 20130618, end: 20130802
  2. TOPAMAX [Concomitant]
     Route: 048
  3. TRAMADOL HCL [Concomitant]
     Route: 048
  4. LISINOP/HCTZ [Concomitant]
  5. SIMVASTATIN [Concomitant]
     Route: 048
  6. VITAMIN D [Concomitant]

REACTIONS (10)
  - Dehydration [Unknown]
  - Diarrhoea [Unknown]
  - Hypotension [Unknown]
  - Nausea [Unknown]
  - Abdominal pain upper [Unknown]
  - Dizziness [Unknown]
  - Loss of consciousness [Recovered/Resolved]
  - Asthenia [Recovered/Resolved]
  - Fall [Recovered/Resolved]
  - Abdominal pain [Unknown]
